FAERS Safety Report 17662312 (Version 5)
Quarter: 2021Q3

REPORT INFORMATION
  Report Type: Report from Study
  Country: ES (occurrence: ES)
  Receive Date: 20200413
  Receipt Date: 20210905
  Transmission Date: 20211014
  Serious: Yes (Death, Life-Threatening, Hospitalization, Disabling)
  Sender: FDA-Public Use
  Company Number: ES-EXELIXIS-XL18420027592

PATIENT
  Age: 60 Year
  Sex: Male
  Weight: 75 kg

DRUGS (1)
  1. CABOZANTINIB [Suspect]
     Active Substance: CABOZANTINIB
     Indication: RENAL CELL CARCINOMA
     Dosage: 60 MG, QD
     Route: 048
     Dates: start: 20200122, end: 20200301

REACTIONS (9)
  - Nervousness [Recovered/Resolved]
  - Pain in extremity [Recovering/Resolving]
  - Thrombocytopenia [Recovering/Resolving]
  - Asthenia [Fatal]
  - Mood swings [Recovered/Resolved]
  - Insomnia [Recovered/Resolved]
  - Hypoxia [Fatal]
  - Mucosal inflammation [Recovering/Resolving]
  - Asthenia [Not Recovered/Not Resolved]

NARRATIVE: CASE EVENT DATE: 20200122
